FAERS Safety Report 5040775-4 (Version None)
Quarter: 2006Q2

REPORT INFORMATION
  Report Type: 
  Country: None (occurrence: None)
  Receive Date: 20060630
  Receipt Date: 20060630
  Transmission Date: 20061013
  Serious: Yes (Other)
  Sender: FDA-Public Use
  Company Number: None

PATIENT
  Age: 45 Year
  Sex: Male
  Weight: 90.7194 kg

DRUGS (1)
  1. TEQUIN [Suspect]
     Indication: PNEUMONIA
     Dosage: BELIEVE WAS THE STANDARD DOSE     10 DAYS -?-    PO
     Route: 048
     Dates: start: 20060310, end: 20060320

REACTIONS (1)
  - BLOOD GLUCOSE INCREASED [None]
